FAERS Safety Report 8112426-3 (Version None)
Quarter: 2012Q1

REPORT INFORMATION
  Report Type: 
  Country: None (occurrence: None)
  Receive Date: 20120131
  Receipt Date: 20120119
  Transmission Date: 20120608
  Serious: Yes (Hospitalization, Disabling, Other)
  Sender: FDA-Public Use
  Company Number: 2012MA000906

PATIENT
  Sex: Male
  Weight: 83.9154 kg

DRUGS (27)
  1. METOCLOPRAMIDE [Suspect]
     Indication: IMPAIRED GASTRIC EMPTYING
     Dates: start: 20000401, end: 20010406
  2. IBUPROFEN [Concomitant]
  3. MIRTAZAPINE [Concomitant]
  4. RISPERDAL [Concomitant]
  5. ASPIRIN [Concomitant]
  6. FOLIC ACID [Concomitant]
  7. LISINOPRIL [Concomitant]
  8. QUETIAPINE [Concomitant]
  9. REMERON [Concomitant]
  10. KLONOPIN [Concomitant]
  11. BENZTROPINE MESYLATE [Concomitant]
  12. SIMVASTATIN [Concomitant]
  13. HALDOL [Concomitant]
  14. SEROQUEL [Concomitant]
  15. TOPAMAX [Concomitant]
  16. OMEPRAZOLE [Concomitant]
  17. ALPRAZOLAM [Concomitant]
  18. THIAMINE HCL [Concomitant]
  19. TOPIRAMATE [Concomitant]
  20. TORADOL [Concomitant]
  21. CALCIUM CARBONATE [Concomitant]
  22. DIPHENHYDRAMINE HCL [Concomitant]
  23. SERTRALINE HYDROCHLORIDE [Concomitant]
  24. AGGRENOX [Concomitant]
  25. BACLOFEN [Concomitant]
  26. FOSINOPRIL SODIUM [Concomitant]
  27. SILDENAFIL CITRATE [Concomitant]

REACTIONS (23)
  - HYPOAESTHESIA [None]
  - PAIN IN JAW [None]
  - EATING DISORDER [None]
  - LACUNAR INFARCTION [None]
  - TARDIVE DYSKINESIA [None]
  - EXTRAPYRAMIDAL DISORDER [None]
  - SOMATIC DELUSION [None]
  - HALLUCINATION, AUDITORY [None]
  - PANIC DISORDER [None]
  - TOOTHACHE [None]
  - CEREBROVASCULAR ACCIDENT [None]
  - ECONOMIC PROBLEM [None]
  - INJURY [None]
  - CONFUSIONAL STATE [None]
  - DYSPEPSIA [None]
  - DRUG INEFFECTIVE [None]
  - DENTAL CARIES [None]
  - EMOTIONAL DISORDER [None]
  - DRUG DEPENDENCE [None]
  - ABDOMINAL PAIN UPPER [None]
  - DYSKINESIA [None]
  - ABNORMAL BEHAVIOUR [None]
  - DYSARTHRIA [None]
